FAERS Safety Report 18253335 (Version 3)
Quarter: 2021Q3

REPORT INFORMATION
  Report Type: Spontaneous
  Country: US (occurrence: US)
  Receive Date: 20200910
  Receipt Date: 20210810
  Transmission Date: 20211014
  Serious: Yes (Hospitalization, Other)
  Sender: FDA-Public Use
  Company Number: US-TEVA-2020-US-1827069

PATIENT
  Age: 56 Year
  Sex: Male
  Weight: 108.86 kg

DRUGS (30)
  1. VALSARTAN W/HYDROCHLOROTHIAZIDE TEVA [Suspect]
     Active Substance: HYDROCHLOROTHIAZIDE\VALSARTAN
     Indication: HYPERTENSION
     Dosage: 16?12.5 MG
     Route: 048
     Dates: start: 20140919, end: 20150713
  2. VALSARTAN/HYDROCHLOROTHIAZIDE AUROBINDO [Suspect]
     Active Substance: HYDROCHLOROTHIAZIDE\VALSARTAN
     Indication: HYPERTENSION
     Dosage: 160?25 MG TABLETS
     Route: 048
     Dates: start: 20150728, end: 20170130
  3. METFORMIN HCL [Concomitant]
     Active Substance: METFORMIN HYDROCHLORIDE
     Indication: DIABETES MELLITUS
     Dosage: 1000 MILLIGRAM DAILY;
     Route: 048
     Dates: start: 20120921, end: 2019
  4. AMITRIPTYLINE HCL [Concomitant]
     Active Substance: AMITRIPTYLINE
     Dosage: 10 MILLIGRAM DAILY; AT NIGHT
     Dates: start: 20130227, end: 2017
  5. AMITRIPTYLINE HCL [Concomitant]
     Active Substance: AMITRIPTYLINE
     Dates: start: 20170130, end: 20180424
  6. TIZANIDINE HCL [Concomitant]
     Active Substance: TIZANIDINE HYDROCHLORIDE
     Indication: MUSCLE RELAXANT THERAPY
     Dosage: 8 MILLIGRAM DAILY;
     Dates: start: 20140716, end: 20160922
  7. TELMISARTAN. [Concomitant]
     Active Substance: TELMISARTAN
  8. TOPIRAMATE HCL [Concomitant]
     Indication: NEUROMYOTONIA
     Dosage: 1.5 TABLETS DAILY
     Dates: start: 20140227
  9. TRAMADOL?ACETAMINOPHEN [Concomitant]
     Active Substance: ACETAMINOPHEN\TRAMADOL
     Dosage: 37.5?325 MG
     Route: 048
     Dates: end: 20180424
  10. AMITRIPTYLINE HCL [Concomitant]
     Active Substance: AMITRIPTYLINE
     Indication: OSTEOARTHRITIS
     Dosage: 25 MILLIGRAM DAILY; AT NIGHT
     Dates: start: 20130227, end: 2017
  11. TIZANIDINE HCL [Concomitant]
     Active Substance: TIZANIDINE HYDROCHLORIDE
     Route: 048
     Dates: start: 20160922, end: 20180424
  12. NISOLDIPINE. [Concomitant]
     Active Substance: NISOLDIPINE
  13. VALSARTAN/HYDROCHLOROTHIAZIDE SOLCO [Suspect]
     Active Substance: HYDROCHLOROTHIAZIDE\VALSARTAN
     Indication: HYPERTENSION
     Dosage: 160?25 MG TABLETS?VALSARTAN/HYDROCHLOROTHIAZIDE SOLCO
     Route: 048
     Dates: start: 20170130, end: 20171101
  14. VALSARTAN/HYDROCHLOROTHIAZIDE SOLCO [Suspect]
     Active Substance: HYDROCHLOROTHIAZIDE\VALSARTAN
     Dosage: 160?25 MG TABLETS
     Route: 065
     Dates: start: 20171101, end: 20180718
  15. METOPROLOL SUCCINATE ER [Concomitant]
     Active Substance: METOPROLOL SUCCINATE
     Indication: HYPERTENSION
     Dosage: 50 MILLIGRAM DAILY;
     Dates: start: 20100122, end: 20161218
  16. KLOR?CON [Concomitant]
     Active Substance: POTASSIUM CHLORIDE
     Route: 048
     Dates: start: 20161108
  17. BICALUTAMIDE. [Concomitant]
     Active Substance: BICALUTAMIDE
     Route: 048
     Dates: start: 20170214, end: 20181218
  18. NASONEX [Concomitant]
     Active Substance: MOMETASONE FUROATE
     Route: 045
     Dates: start: 20161231
  19. NISOLDIPINE ER [Concomitant]
     Active Substance: NISOLDIPINE
  20. GABAPENTIN. [Concomitant]
     Active Substance: GABAPENTIN
     Route: 048
     Dates: start: 20161109, end: 20180424
  21. NISOLDIPINE ER [Concomitant]
     Active Substance: NISOLDIPINE
     Indication: HYPERTENSION
     Dosage: 40 MILLIGRAM DAILY;
     Dates: start: 20100217, end: 20150216
  22. FLOMAX [Concomitant]
     Active Substance: TAMSULOSIN HYDROCHLORIDE
     Route: 048
     Dates: start: 20170509, end: 20180614
  23. FUROSEMIDE. [Concomitant]
     Active Substance: FUROSEMIDE
  24. TOPIRAMATE HCL [Concomitant]
     Dates: start: 20170202
  25. VALSARTAN SOLCO [Suspect]
     Active Substance: VALSARTAN
     Indication: HYPERTENSION
     Route: 048
     Dates: start: 20171101, end: 20180718
  26. METOPROLOL SUCCINATE ER [Concomitant]
     Active Substance: METOPROLOL SUCCINATE
     Route: 048
     Dates: start: 20161218, end: 20181218
  27. OMEPRAZOLE DR [Concomitant]
     Active Substance: OMEPRAZOLE
     Indication: GASTROOESOPHAGEAL REFLUX DISEASE
     Dosage: 40 MILLIGRAM DAILY;
     Dates: start: 20140903, end: 20161111
  28. OMEPRAZOLE DR [Concomitant]
     Active Substance: OMEPRAZOLE
     Route: 048
     Dates: start: 20161111
  29. MIRALAX [Concomitant]
     Active Substance: POLYETHYLENE GLYCOL 3350
     Indication: CONSTIPATION
  30. KLOR?CON [Concomitant]
     Active Substance: POTASSIUM CHLORIDE
     Indication: BLOOD POTASSIUM DECREASED
     Dosage: 40 MILLIEQUIVALENTS DAILY;
     Dates: start: 20100502, end: 20110325

REACTIONS (4)
  - Prostate cancer [Not Recovered/Not Resolved]
  - Proctitis [Not Recovered/Not Resolved]
  - Rectal haemorrhage [Not Recovered/Not Resolved]
  - Erectile dysfunction [Not Recovered/Not Resolved]
